FAERS Safety Report 6372611-8 (Version None)
Quarter: 2009Q3

REPORT INFORMATION
  Report Type: 
  Country: None (occurrence: None)
  Receive Date: 20090924
  Receipt Date: 20070905
  Transmission Date: 20100115
  Serious: Yes (Other)
  Sender: FDA-Public Use
  Company Number: US-ASTRAZENECA-2006UW27567

PATIENT
  Age: 52 Year
  Sex: Female
  Weight: 130.6 kg

DRUGS (3)
  1. SEROQUEL [Suspect]
     Indication: BIPOLAR DISORDER
     Dosage: 25-600 MG
     Route: 048
     Dates: start: 19980220
  2. ZYPREXA [Concomitant]
     Dosage: 5-10 MG
     Dates: start: 19970730
  3. SYNTHROID [Concomitant]
     Route: 048
     Dates: start: 20040218

REACTIONS (6)
  - DIABETES MELLITUS [None]
  - DIABETES MELLITUS INADEQUATE CONTROL [None]
  - DIABETIC AMYOTROPHY [None]
  - DIABETIC NEUROPATHY [None]
  - DRY MOUTH [None]
  - TYPE 2 DIABETES MELLITUS [None]
